FAERS Safety Report 19515401 (Version 2)
Quarter: 2022Q4

REPORT INFORMATION
  Report Type: Spontaneous
  Country: CA (occurrence: CA)
  Receive Date: 20210709
  Receipt Date: 20221213
  Transmission Date: 20230113
  Serious: Yes (Death)
  Sender: FDA-Public Use
  Company Number: CA-ALLERGAN-2125049US

PATIENT
  Sex: Male
  Weight: 103 kg

DRUGS (6)
  1. ESCITALOPRAM OXALATE [Suspect]
     Active Substance: ESCITALOPRAM OXALATE
     Indication: Product used for unknown indication
     Dosage: OVERDOSE: UNKNOWN DOSE
  2. METFORMIN [Suspect]
     Active Substance: METFORMIN HYDROCHLORIDE
     Indication: Product used for unknown indication
  3. FENTANYL [Concomitant]
     Active Substance: FENTANYL
  4. MIDAZOLAM HYDROCHLORIDE [Concomitant]
     Active Substance: MIDAZOLAM HYDROCHLORIDE
  5. RIVAROXABAN [Concomitant]
     Active Substance: RIVAROXABAN
  6. ROSUVASTATIN [Concomitant]
     Active Substance: ROSUVASTATIN
     Route: 058

REACTIONS (4)
  - Completed suicide [Fatal]
  - Intentional overdose [Fatal]
  - Metabolic acidosis [Fatal]
  - Shock [Fatal]

NARRATIVE: CASE EVENT DATE: 20200101
